FAERS Safety Report 16118636 (Version 2)
Quarter: 2019Q1

REPORT INFORMATION
  Report Type: Spontaneous
  Country: FR (occurrence: FR)
  Receive Date: 20190326
  Receipt Date: 20190328
  Transmission Date: 20190418
  Serious: Yes (Death, Other)
  Sender: FDA-Public Use
  Company Number: FR-JNJFOC-20150809476

PATIENT

DRUGS (7)
  1. METHOTREXATE. [Concomitant]
     Active Substance: METHOTREXATE
     Indication: PROPHYLAXIS
     Route: 037
  2. VINCRISTINE [Suspect]
     Active Substance: VINCRISTINE
     Indication: ANGIOIMMUNOBLASTIC T-CELL LYMPHOMA
     Route: 065
  3. CYCLOPHOSPHAMIDE. [Suspect]
     Active Substance: CYCLOPHOSPHAMIDE
     Indication: ANGIOIMMUNOBLASTIC T-CELL LYMPHOMA
     Route: 065
  4. PREDNISONE. [Suspect]
     Active Substance: PREDNISONE
     Indication: ANGIOIMMUNOBLASTIC T-CELL LYMPHOMA
     Route: 065
  5. PEGFILGRASTIM [Concomitant]
     Active Substance: PEGFILGRASTIM
     Route: 065
  6. DOXORUBICIN HYDROCHLORIDE. [Suspect]
     Active Substance: DOXORUBICIN HYDROCHLORIDE
     Indication: ANGIOIMMUNOBLASTIC T-CELL LYMPHOMA
     Route: 042
  7. LENALIDOMIDE [Suspect]
     Active Substance: LENALIDOMIDE
     Indication: ANGIOIMMUNOBLASTIC T-CELL LYMPHOMA
     Route: 065

REACTIONS (8)
  - Toxicity to various agents [Fatal]
  - Neoplasm malignant [Unknown]
  - Deep vein thrombosis [Unknown]
  - Product use in unapproved indication [Unknown]
  - Infection [Fatal]
  - Neutropenia [Unknown]
  - Thrombocytopenia [Unknown]
  - Off label use [Unknown]
